FAERS Safety Report 21492590 (Version 1)
Quarter: 2022Q4

REPORT INFORMATION
  Report Type: Spontaneous
  Country: US (occurrence: US)
  Receive Date: 20221021
  Receipt Date: 20221021
  Transmission Date: 20230113
  Serious: No
  Sender: FDA-Public Use
  Company Number: US-HORIZON THERAPEUTICS-HZN-2021-001956

PATIENT

DRUGS (1)
  1. KRYSTEXXA [Suspect]
     Active Substance: PEGLOTICASE
     Indication: Gout
     Dosage: 1ST INFUSION
     Route: 065
     Dates: start: 20160501, end: 20190201

REACTIONS (3)
  - Hyperhidrosis [Unknown]
  - Gout [Unknown]
  - Blood uric acid increased [Unknown]
